FAERS Safety Report 15076617 (Version 3)
Quarter: 2018Q3

REPORT INFORMATION
  Report Type: Spontaneous
  Country: JP (occurrence: JP)
  Receive Date: 20180627
  Receipt Date: 20180710
  Transmission Date: 20181010
  Serious: Yes (Hospitalization)
  Sender: FDA-Public Use
  Company Number: JP-PFIZER INC-2018213965

PATIENT
  Age: 51 Year
  Sex: Male

DRUGS (1)
  1. SUTENT [Suspect]
     Active Substance: SUNITINIB MALATE
     Indication: METASTATIC RENAL CELL CARCINOMA
     Dosage: 50 MG, CYCLIC (ONCE A DAY, 2?WEEK ON TREATMENT FOLLOWED BY 1?WEEK OFF TREATMENT)
     Dates: start: 20180516

REACTIONS (5)
  - Oedema [Recovering/Resolving]
  - Weight increased [Unknown]
  - Neoplasm progression [Unknown]
  - Hypertension [Unknown]
  - Hyponatraemia [Recovering/Resolving]

NARRATIVE: CASE EVENT DATE: 201805
